FAERS Safety Report 23558602 (Version 1)
Quarter: 2024Q1

REPORT INFORMATION
  Report Type: Spontaneous
  Country: US (occurrence: None)
  Receive Date: 20240221
  Receipt Date: 20240221
  Transmission Date: 20240410
  Serious: No
  Sender: FDA-Public Use
  Company Number: None

PATIENT
  Age: 55 Year
  Sex: Male

DRUGS (2)
  1. CANNABINOL\HERBALS [Suspect]
     Active Substance: CANNABINOL\HERBALS
  2. CBD PAIN CREAM [Suspect]
     Active Substance: LIDOCAINE

REACTIONS (2)
  - Manufacturing production issue [None]
  - Manufacturing facilities issue [None]
